FAERS Safety Report 16664321 (Version 1)
Quarter: 2019Q3

REPORT INFORMATION
  Report Type: Spontaneous
  Country: AU (occurrence: AU)
  Receive Date: 20190802
  Receipt Date: 20190802
  Transmission Date: 20191004
  Serious: Yes (Other)
  Sender: FDA-Public Use
  Company Number: AU-SUNOVION-2019DSP006456

PATIENT
  Sex: Male

DRUGS (4)
  1. LATUDA [Suspect]
     Active Substance: LURASIDONE HYDROCHLORIDE
     Dosage: 40 MG, QD
     Route: 048
  2. SODIUM VALPROATE SANDOZ [Concomitant]
     Active Substance: VALPROATE SODIUM
     Dosage: UNK
     Route: 065
  3. RISPERIDONE. [Concomitant]
     Active Substance: RISPERIDONE
     Dosage: 1 MG
     Route: 065
  4. LATUDA [Suspect]
     Active Substance: LURASIDONE HYDROCHLORIDE
     Dosage: 80 MG, QD
     Route: 048

REACTIONS (6)
  - Erectile dysfunction [Recovered/Resolved]
  - Overdose [Unknown]
  - Psychiatric symptom [Unknown]
  - Psychotic disorder [Unknown]
  - Insomnia [Unknown]
  - Somnolence [Unknown]

NARRATIVE: CASE EVENT DATE: 201712
